FAERS Safety Report 11993142 (Version 2)
Quarter: 2016Q2

REPORT INFORMATION
  Report Type: Spontaneous
  Country: DE (occurrence: DE)
  Receive Date: 20160203
  Receipt Date: 20160420
  Transmission Date: 20160815
  Serious: Yes (Other)
  Sender: FDA-Public Use
  Company Number: DE-SUN PHARMACEUTICAL INDUSTRIES LTD-2016RR-110646

PATIENT

DRUGS (3)
  1. CIPRO [Suspect]
     Active Substance: CIPROFLOXACIN HYDROCHLORIDE
     Indication: SINUSITIS
     Dosage: 1-0-1
     Route: 048
     Dates: start: 20151118, end: 20151123
  2. L-THYROXIN 1A PHARMA [Concomitant]
     Indication: HYPOTHYROIDISM
     Dosage: 50 ?G, QD
     Route: 048
  3. VALSARTAN HEXAL 80 MG [Concomitant]
     Indication: HYPERTENSION
     Route: 065

REACTIONS (12)
  - Pain in extremity [Recovering/Resolving]
  - Palpitations [Recovering/Resolving]
  - Dizziness [Recovering/Resolving]
  - Gastrointestinal disorder [Recovering/Resolving]
  - Tachycardia [Recovering/Resolving]
  - Tendonitis [Recovering/Resolving]
  - Intervertebral disc disorder [Recovering/Resolving]
  - Arthralgia [Recovering/Resolving]
  - Gait disturbance [Recovering/Resolving]
  - Restlessness [Recovering/Resolving]
  - Atrial fibrillation [Recovering/Resolving]
  - Phlebitis [Recovering/Resolving]

NARRATIVE: CASE EVENT DATE: 20151118
